FAERS Safety Report 15104364 (Version 1)
Quarter: 2018Q3

REPORT INFORMATION
  Report Type: Spontaneous
  Country: FR (occurrence: FR)
  Receive Date: 20180703
  Receipt Date: 20180703
  Transmission Date: 20181010
  Serious: Yes (Death)
  Sender: FDA-Public Use
  Company Number: FR-PFIZER INC-2018263556

PATIENT
  Age: 57 Year
  Sex: Male
  Weight: 63.5 kg

DRUGS (3)
  1. VINCRISTINE SULFATE. [Suspect]
     Active Substance: VINCRISTINE SULFATE
     Indication: BRONCHIAL CARCINOMA
     Dosage: 1.95 MG, CYCLIC
     Route: 042
     Dates: start: 20171218, end: 20180404
  2. ENDOXAN /00021101/ [Suspect]
     Active Substance: CYCLOPHOSPHAMIDE
     Indication: BRONCHIAL CARCINOMA
     Dosage: 1830 MG, CYCLIC
     Route: 042
     Dates: start: 20171218, end: 20180404
  3. DOXORUBICINE TEVA [Suspect]
     Active Substance: DOXORUBICIN
     Indication: BRONCHIAL CARCINOMA
     Dosage: 91.5 MG, CYCLIC
     Route: 042
     Dates: start: 20171218, end: 20180404

REACTIONS (3)
  - Death [Fatal]
  - Nausea [Recovered/Resolved]
  - Vomiting [Recovered/Resolved]

NARRATIVE: CASE EVENT DATE: 20180118
